FAERS Safety Report 20474134 (Version 3)
Quarter: 2022Q2

REPORT INFORMATION
  Report Type: Spontaneous
  Country: US (occurrence: US)
  Receive Date: 20220215
  Receipt Date: 20220427
  Transmission Date: 20220721
  Serious: Yes (Hospitalization, Other)
  Sender: FDA-Public Use
  Company Number: US-TORRENT-00011747

PATIENT
  Age: 40 Year
  Sex: Female

DRUGS (1)
  1. CARBAMAZEPINE [Suspect]
     Active Substance: CARBAMAZEPINE
     Indication: Trigeminal neuralgia
     Dosage: REPEATED SUPRA THERAPEUTIC DOSING
     Route: 048

REACTIONS (6)
  - Nervous system disorder [Unknown]
  - Neurotoxicity [Unknown]
  - Cognitive disorder [Recovered/Resolved]
  - Cerebrovascular accident [Unknown]
  - Toxicity to various agents [Recovered/Resolved]
  - Drug level increased [Recovered/Resolved]
